FAERS Safety Report 18314605 (Version 5)
Quarter: 2022Q1

REPORT INFORMATION
  Report Type: Spontaneous
  Country: US (occurrence: US)
  Receive Date: 20200925
  Receipt Date: 20220118
  Transmission Date: 20220423
  Serious: No
  Sender: FDA-Public Use
  Company Number: US-PFIZER INC-2020371152

PATIENT
  Age: 85 Year
  Sex: Female
  Weight: 72.562 kg

DRUGS (10)
  1. IBRANCE [Suspect]
     Active Substance: PALBOCICLIB
     Indication: Breast cancer female
     Dosage: 75 MG, CYCLIC (DAILY 21 DAYS)
     Route: 048
     Dates: start: 202008, end: 2020
  2. IBRANCE [Suspect]
     Active Substance: PALBOCICLIB
     Dosage: 75 MG, ALTERNATE DAY (1 EVERY OTHER DAY)
     Route: 048
  3. IBRANCE [Suspect]
     Active Substance: PALBOCICLIB
     Dosage: 75 MG, ALTERNATE DAY (EVERY OTHER DAY FOR 21 DAYS ON, 7 OFF)
     Route: 048
     Dates: start: 202008
  4. IBRANCE [Suspect]
     Active Substance: PALBOCICLIB
     Dosage: 100 MG, CYCLIC (EVERY OTHER DAY FOR 21 DAYS ON, 7 DAYS OFF)
  5. IBRANCE [Suspect]
     Active Substance: PALBOCICLIB
     Dosage: 75 MG, CYCLIC:75MG BY MOUTH EVERY OTHER DAY 2 WEEKS ON, THEN 2 WEEKS OFF
     Route: 048
     Dates: start: 202008
  6. CHILDRENS BENADRYL ALLERGY [Concomitant]
     Active Substance: DIPHENHYDRAMINE HYDROCHLORIDE
  7. FASLODEX [Concomitant]
     Active Substance: FULVESTRANT
  8. PROLIA [Concomitant]
     Active Substance: DENOSUMAB
  9. CYANOCOBALAMIN [Concomitant]
     Active Substance: CYANOCOBALAMIN
  10. VITAMIN D3 [Concomitant]
     Active Substance: CHOLECALCIFEROL

REACTIONS (7)
  - White blood cell count decreased [Unknown]
  - Feeling abnormal [Unknown]
  - Constipation [Unknown]
  - Abdominal discomfort [Unknown]
  - Urinary tract infection [Unknown]
  - Fatigue [Unknown]
  - Dry mouth [Unknown]

NARRATIVE: CASE EVENT DATE: 20200101
